FAERS Safety Report 16737771 (Version 1)
Quarter: 2019Q3

REPORT INFORMATION
  Report Type: Report from Study
  Country: US (occurrence: US)
  Receive Date: 20190823
  Receipt Date: 20190823
  Transmission Date: 20191005
  Serious: Yes (Other)
  Sender: FDA-Public Use
  Company Number: US-BRISTOL-MYERS SQUIBB COMPANY-BMS-2019-081465

PATIENT

DRUGS (1)
  1. NIVOLUMAB [Suspect]
     Active Substance: NIVOLUMAB
     Indication: HODGKIN^S DISEASE
     Route: 065

REACTIONS (13)
  - Anaemia [Recovered/Resolved]
  - Nausea [Recovered/Resolved]
  - Blood alkaline phosphatase increased [Recovered/Resolved]
  - Platelet count decreased [Recovered/Resolved]
  - Arthralgia [Recovered/Resolved]
  - Dry mouth [Recovered/Resolved]
  - White blood cell count decreased [Recovered/Resolved]
  - Alopecia [Recovered/Resolved]
  - Melaena [Recovered/Resolved]
  - Constipation [Recovered/Resolved]
  - Neutrophil count decreased [Unknown]
  - Mucosal inflammation [Recovered/Resolved]
  - Fatigue [Recovered/Resolved]
